FAERS Safety Report 7367457 (Version 2)
Quarter: 2016Q4

REPORT INFORMATION
  Report Type: Report from Study
  Country: US (occurrence: US)
  Receive Date: 20100427
  Receipt Date: 20161215
  Transmission Date: 20170207
  Serious: Yes (Death, Hospitalization)
  Sender: FDA-Public Use
  Company Number: US-ROCHE-698229

PATIENT
  Age: 61 Year
  Sex: Male

DRUGS (5)
  1. TRASTUZUMAB [Suspect]
     Active Substance: TRASTUZUMAB
     Indication: BLADDER CANCER
     Dosage: LOADING DOSE, FORM: POWDER AND SOLVENT FOR SOLUTION FOR INFUSION
     Route: 041
  2. GEMCITABINE [Suspect]
     Active Substance: GEMCITABINE\GEMCITABINE HYDROCHLORIDE
     Indication: BLADDER CANCER
     Dosage: FORM: POWDER AND SOLVENT FOR SOLUTION FOR INFUSION, FREQUENCY: ONCE, DAYS 1, 8
     Route: 041
  3. TRASTUZUMAB [Suspect]
     Active Substance: TRASTUZUMAB
     Dosage: FORM: POWDER AND SOLVENT FOR SOLUTION FOR INFUSION, RECEIVED ON DAY 1, 8 AND 15 EVERY 21 DAYS
     Route: 041
  4. PACLITAXEL. [Suspect]
     Active Substance: PACLITAXEL
     Indication: BLADDER CANCER
     Dosage: FORM: POWDER AND SOLVENT FOR SOLUTION FOR INFUSION, FREQUENCY; ONCE, DAY 1
     Route: 041
  5. CARBOPLATIN. [Suspect]
     Active Substance: CARBOPLATIN
     Indication: BLADDER CANCER
     Dosage: FORM: POWDER AND SOLVENT FOR SOLUTION FOR INFUSION, FREQUENCY: ONCE, AUC 5 DAY1
     Route: 041

REACTIONS (4)
  - Drug ineffective [Fatal]
  - Metastases to central nervous system [Fatal]
  - Metastases to meninges [Fatal]
  - Disease progression [Fatal]
